FAERS Safety Report 13685322 (Version 1)
Quarter: 2017Q2

REPORT INFORMATION
  Report Type: Spontaneous
  Country: US (occurrence: US)
  Receive Date: 20170623
  Receipt Date: 20170623
  Transmission Date: 20170830
  Serious: Yes (Other)
  Sender: FDA-Public Use
  Company Number: US-MYLANLABS-2017M1037370

PATIENT

DRUGS (4)
  1. VELIPARIB [Suspect]
     Active Substance: VELIPARIB
     Indication: PANCREATIC CARCINOMA
     Route: 048
     Dates: start: 20140605
  2. FLUOROURACIL. [Concomitant]
     Active Substance: FLUOROURACIL
     Indication: PANCREATIC CARCINOMA
     Dosage: 2400MG/M2 DAYS 1-3, EVERY 2 WEEKS
     Route: 050
     Dates: start: 20140605
  3. OXALIPLATIN. [Suspect]
     Active Substance: OXALIPLATIN
     Indication: PANCREATIC CARCINOMA
     Dosage: 85MG/M2 DAY 1, EVERY 2 WEEKS
     Route: 065
     Dates: start: 20140605
  4. OLAPARIB [Suspect]
     Active Substance: OLAPARIB
     Indication: PANCREATIC CARCINOMA
     Route: 048

REACTIONS (4)
  - Neuropathy peripheral [Unknown]
  - Vomiting [Unknown]
  - Drug resistance [Unknown]
  - Nausea [Unknown]
